FAERS Safety Report 6607149-3 (Version None)
Quarter: 2010Q1

REPORT INFORMATION
  Report Type: 
  Country: None (occurrence: None)
  Receive Date: 20100212
  Receipt Date: 20091019
  Transmission Date: 20100710
  Serious: No
  Sender: FDA-Public Use
  Company Number: 1000009556

PATIENT
  Age: 40 Year
  Sex: Male

DRUGS (6)
  1. SAVELLA [Suspect]
     Indication: FIBROMYALGIA
     Dosage: 12.5 (12.5 MG, 1 IN 1 D); 25 (12.5 MG, 2 IN 1 D); 50 (25 MG, 2 IN 1 D), MG ORAL
     Route: 048
     Dates: start: 20090929, end: 20090929
  2. SAVELLA [Suspect]
     Indication: FIBROMYALGIA
     Dosage: 12.5 (12.5 MG, 1 IN 1 D); 25 (12.5 MG, 2 IN 1 D); 50 (25 MG, 2 IN 1 D), MG ORAL
     Route: 048
     Dates: start: 20090930, end: 20091001
  3. SAVELLA [Suspect]
     Indication: FIBROMYALGIA
     Dosage: 12.5 (12.5 MG, 1 IN 1 D); 25 (12.5 MG, 2 IN 1 D); 50 (25 MG, 2 IN 1 D), MG ORAL
     Route: 048
     Dates: start: 20091002, end: 20091005
  4. SAVELLA [Suspect]
     Indication: FIBROMYALGIA
     Dosage: 100 MG (50 MG, 2 IN 1 D), ORAL
     Route: 048
     Dates: start: 20091006, end: 20091009
  5. ZYPREXA [Concomitant]
  6. ZOLOFT [Concomitant]

REACTIONS (1)
  - RASH MACULO-PAPULAR [None]
